FAERS Safety Report 6761789-X (Version None)
Quarter: 2010Q2

REPORT INFORMATION
  Report Type: 
  Country: None (occurrence: None)
  Receive Date: 20100609
  Receipt Date: 20100607
  Transmission Date: 20101027
  Serious: Yes (Other)
  Sender: FDA-Public Use
  Company Number: US-BAYER-201022140NA

PATIENT
  Age: 44 Year
  Sex: Female

DRUGS (2)
  1. BETASERON [Suspect]
     Indication: MULTIPLE SCLEROSIS
     Dosage: TOTAL DAILY DOSE: 8 MIU
     Route: 058
     Dates: start: 20091223
  2. BETASERON [Suspect]
     Dosage: TOTAL DAILY DOSE: 2 MIU
     Route: 058
     Dates: start: 20100501

REACTIONS (8)
  - ANXIETY [None]
  - CHILLS [None]
  - CYANOSIS [None]
  - HYPERVENTILATION [None]
  - MALAISE [None]
  - NASOPHARYNGITIS [None]
  - PYREXIA [None]
  - RHINORRHOEA [None]
